FAERS Safety Report 24937330 (Version 1)
Quarter: 2025Q1

REPORT INFORMATION
  Report Type: Spontaneous
  Country: US (occurrence: US)
  Receive Date: 20250206
  Receipt Date: 20250206
  Transmission Date: 20250408
  Serious: No
  Sender: BAYER HEALTHCARE LLC
  Company Number: US-BAYER-2025A017454

PATIENT
  Age: 62 Year
  Sex: Male

DRUGS (2)
  1. ALEVE BACK AND MUSCLE PAIN [Suspect]
     Active Substance: NAPROXEN SODIUM
     Indication: Pain
     Dosage: 1 DF, Q4HR
     Route: 048
     Dates: start: 20250202, end: 20250202
  2. ALEVE BACK AND MUSCLE PAIN [Suspect]
     Active Substance: NAPROXEN SODIUM
     Indication: Pain
     Dosage: UNK, BID, 1 TABLET EVERY 12 HOURS
     Route: 048
     Dates: start: 20250203, end: 20250205

REACTIONS (2)
  - Inappropriate schedule of product administration [Unknown]
  - Expired product administered [None]

NARRATIVE: CASE EVENT DATE: 20250202
